FAERS Safety Report 24664165 (Version 1)
Quarter: 2024Q4

REPORT INFORMATION
  Report Type: Report from Study
  Country: BE (occurrence: BE)
  Receive Date: 20241126
  Receipt Date: 20241126
  Transmission Date: 20250115
  Serious: Yes (Hospitalization)
  Sender: ABBVIE
  Company Number: BE-ABBVIE-6016273

PATIENT
  Age: 84 Year
  Sex: Male

DRUGS (3)
  1. FOSCARBIDOPA\FOSLEVODOPA [Suspect]
     Active Substance: FOSCARBIDOPA\FOSLEVODOPA
     Indication: Parkinson^s disease
     Dosage: LD: 1.20ML, BI RATE:0.84ML/H, HI RATE: 0.84ML/H, LI RATE: 0.80ML/H, ED: 0.30ML, DURING 24 HOURS
     Route: 058
     Dates: start: 20241010, end: 20241120
  2. FOSCARBIDOPA\FOSLEVODOPA [Suspect]
     Active Substance: FOSCARBIDOPA\FOSLEVODOPA
     Route: 058
     Dates: start: 20241007, end: 20241010
  3. FOSCARBIDOPA\FOSLEVODOPA [Suspect]
     Active Substance: FOSCARBIDOPA\FOSLEVODOPA
     Dosage: LD: 12.00ML, BI RATE:8.00ML/H, HI RATE: 8.00ML/H, LI RATE: 6.00ML/H, ED: 3.00ML, DURING 24 HOURS
     Route: 058
     Dates: start: 20241120

REACTIONS (3)
  - Anaemia [Unknown]
  - Malaise [Unknown]
  - Toxicity to various agents [Unknown]

NARRATIVE: CASE EVENT DATE: 20241101
